FAERS Safety Report 13072239 (Version 4)
Quarter: 2017Q1

REPORT INFORMATION
  Report Type: Report from Study
  Country: US (occurrence: US)
  Receive Date: 20161229
  Receipt Date: 20170209
  Transmission Date: 20170428
  Serious: Yes (Death, Hospitalization)
  Sender: FDA-Public Use
  Company Number: US-ACTELION-A-NJ2016-147386

PATIENT
  Age: 81 Year
  Sex: Male
  Weight: 61.22 kg

DRUGS (16)
  1. PROAIR HFA [Concomitant]
     Active Substance: ALBUTEROL SULFATE
  2. ACTIMMUNE [Concomitant]
     Active Substance: INTERFERON GAMMA-1B
  3. FOSINOPRIL [Concomitant]
     Active Substance: FOSINOPRIL
  4. MUCINEX [Concomitant]
     Active Substance: GUAIFENESIN
  5. METOPROLOL. [Concomitant]
     Active Substance: METOPROLOL
  6. CLOPIDOGREL [Concomitant]
     Active Substance: CLOPIDOGREL BISULFATE
  7. DICLOFENAC [Concomitant]
     Active Substance: DICLOFENAC
  8. ISOSORBIDE. [Concomitant]
     Active Substance: ISOSORBIDE
  9. TAMSULOSIN [Concomitant]
     Active Substance: TAMSULOSIN
  10. UPTRAVI [Suspect]
     Active Substance: SELEXIPAG
     Dosage: UNK MCG, UNK
     Route: 048
     Dates: start: 20160915
  11. OPSUMIT [Suspect]
     Active Substance: MACITENTAN
     Indication: PULMONARY HYPERTENSION
     Dosage: 10 MG, QD
     Route: 048
     Dates: start: 20160317
  12. ASPIRIN. [Concomitant]
     Active Substance: ASPIRIN
  13. OMEPRAZOLE. [Concomitant]
     Active Substance: OMEPRAZOLE
  14. UPTRAVI [Suspect]
     Active Substance: SELEXIPAG
     Indication: PULMONARY HYPERTENSION
     Dosage: 800 MCG, BID
     Route: 048
  15. FINASTERIDE. [Concomitant]
     Active Substance: FINASTERIDE
  16. SIMVASTATIN. [Concomitant]
     Active Substance: SIMVASTATIN

REACTIONS (2)
  - Death [Fatal]
  - Pneumonia [Unknown]

NARRATIVE: CASE EVENT DATE: 20161128
